FAERS Safety Report 7725283-1 (Version None)
Quarter: 2011Q3

REPORT INFORMATION
  Report Type: 
  Country: None (occurrence: None)
  Receive Date: 20110902
  Receipt Date: 20110823
  Transmission Date: 20111222
  Serious: No
  Sender: FDA-Public Use
  Company Number: US-BIOGENIDEC-2011BI032161

PATIENT
  Age: 46 Year
  Sex: Female

DRUGS (1)
  1. AVONEX [Suspect]
     Indication: MULTIPLE SCLEROSIS
     Route: 030
     Dates: start: 20110815

REACTIONS (8)
  - TENSION HEADACHE [None]
  - PAIN IN EXTREMITY [None]
  - ANXIETY [None]
  - CHEST DISCOMFORT [None]
  - PAIN [None]
  - BACK PAIN [None]
  - WHEEZING [None]
  - DEPRESSED MOOD [None]
